FAERS Safety Report 20446203 (Version 5)
Quarter: 2022Q2

REPORT INFORMATION
  Report Type: Spontaneous
  Country: PL (occurrence: PL)
  Receive Date: 20220208
  Receipt Date: 20220421
  Transmission Date: 20220720
  Serious: Yes (Hospitalization, Other)
  Sender: FDA-Public Use
  Company Number: PL-AMERICAN REGENT INC-2022000265

PATIENT
  Sex: Female
  Weight: 45.5 kg

DRUGS (8)
  1. VENOFER [Suspect]
     Active Substance: IRON SUCROSE
     Indication: Anaemia
     Dosage: 100 MILLIGRAM, 1 IN 1 WK
     Route: 042
     Dates: start: 20210602
  2. VENOFER [Suspect]
     Active Substance: IRON SUCROSE
     Dosage: 100 MILLIGRAM, 1 IN 1 WK
     Route: 042
     Dates: start: 20210818, end: 20210818
  3. THYROSAN [Concomitant]
     Indication: Hyperthyroidism
     Dosage: 50 MG, 3 IN 1 D
     Route: 048
     Dates: start: 20210528
  4. METHYLDOPA [Concomitant]
     Active Substance: METHYLDOPA
     Indication: Hypertension
     Dosage: 250 MG, 3 IN 1 D
     Route: 048
     Dates: start: 20210501
  5. VERAPAMIL HYDROCHLORIDE [Concomitant]
     Active Substance: VERAPAMIL HYDROCHLORIDE
     Indication: Hypertension
     Dosage: 40 MG, 3 IN 1 D
     Route: 048
     Dates: start: 20210528
  6. FOLIC ACID [Concomitant]
     Active Substance: FOLIC ACID
     Indication: Anaemia
     Dosage: 15 MG, 1 IN 1 D
     Route: 048
     Dates: start: 20210501
  7. ERYTHROPOIETIN [Concomitant]
     Active Substance: ERYTHROPOIETIN
     Indication: Anaemia
     Dosage: 12000 U.M.
     Route: 058
  8. ERYTHROPOIETIN [Concomitant]
     Active Substance: ERYTHROPOIETIN
     Dosage: 2000 INTERNATIONAL UNIT
     Route: 058
     Dates: start: 20210501

REACTIONS (6)
  - Stillbirth [Recovered/Resolved]
  - Maternal exposure during pregnancy [Unknown]
  - Pneumonia [Unknown]
  - Foetal growth restriction [Unknown]
  - End stage renal disease [Unknown]
  - Infection [Unknown]

NARRATIVE: CASE EVENT DATE: 20210101
